FAERS Safety Report 4320993-0 (Version None)
Quarter: 2004Q1

REPORT INFORMATION
  Report Type: 
  Country: None (occurrence: None)
  Receive Date: 20040316
  Receipt Date: 20040227
  Transmission Date: 20041129
  Serious: Yes (Hospitalization)
  Sender: FDA-Public Use
  Company Number: E2004-00267

PATIENT
  Age: 9 Year
  Sex: Male

DRUGS (1)
  1. TUBERTEST (TUBERCULIN PPD(M) 5 TU) [Suspect]
     Indication: TUBERCULIN TEST
     Dosage: I.D.
     Route: 041
     Dates: start: 20030830

REACTIONS (7)
  - INJECTION SITE ABSCESS [None]
  - INJECTION SITE ERYTHEMA [None]
  - INJECTION SITE INFECTION [None]
  - INJECTION SITE NODULE [None]
  - INJECTION SITE PAIN [None]
  - INJECTION SITE SWELLING [None]
  - STREPTOCOCCAL ABSCESS [None]
